FAERS Safety Report 23470998 (Version 1)
Quarter: 2024Q1

REPORT INFORMATION
  Report Type: Spontaneous
  Country: DE (occurrence: DE)
  Receive Date: 20240202
  Receipt Date: 20240202
  Transmission Date: 20240410
  Serious: Yes (Hospitalization)
  Sender: FDA-Public Use
  Company Number: DE-SAMSUNG BIOEPIS-SB-2023-32798

PATIENT
  Age: 63 Year
  Sex: Male

DRUGS (10)
  1. LEUCOVORIN [Suspect]
     Active Substance: LEUCOVORIN\LEUCOVORIN CALCIUM
     Indication: Oesophageal adenocarcinoma
     Dosage: D1/D15/D29 AND D43 PRE-AND POST OP?200 MG/M2?FORM: UNKNOWN (OTHER/UNSPECIFIED) ?INTRAVENOUS?ROA-2004
     Route: 042
  2. OXALIPLATIN [Suspect]
     Active Substance: OXALIPLATIN
     Indication: Oesophageal adenocarcinoma
     Dosage: D1/D15/D29 AND D43 PRE-AND POST OP?85 MG/M2?FORM: UNSPECIFIED/OTHER?ROA: INTRAVENOUS
     Route: 042
  3. DOCETAXEL [Suspect]
     Active Substance: DOCETAXEL\DOCETAXEL ANHYDROUS
     Indication: Oesophageal adenocarcinoma
     Dosage: D1/D15/D29 AND D43 PRE-AND POST OP?50 MG/M2?INTRAVENOUS?FORM: UNSPECIFIED/OTHER
  4. DOCETAXEL [Suspect]
     Active Substance: DOCETAXEL\DOCETAXEL ANHYDROUS
     Indication: Product used for unknown indication
     Dosage: D1/D15/D29 AND D43 PRE-AND POST OP?FORM: UNSPECIFIED/OTHER?50 MG/M2?ROA: INTRAVENOUS
  5. FLUOROURACIL [Suspect]
     Active Substance: FLUOROURACIL
     Indication: Oesophageal adenocarcinoma
     Dosage: D1/D15/D29 AND D43 PRE-AND POST OP?2600 MG/M2?UNKNOWN (OTHER/UNSPECIFIED) ?INTRAVENOUS
  6. FLUOROURACIL [Suspect]
     Active Substance: FLUOROURACIL
     Indication: Product used for unknown indication
     Dosage: D1/D15/D29 AND D43 PRE-AND POST OP?FORM: UNSPECIFIED/OTHER?ROA: INTRAVENOUS?2600 MG/M2
  7. PEMBROLIZUMAB [Suspect]
     Active Substance: PEMBROLIZUMAB
     Indication: Oesophageal adenocarcinoma
     Dosage: 200 MG FLAT DOSE, D1/D22/D43 PRE-AND POST OP, AFTERWARDS D1 Q3W.?200 MG?UNKNOWN (OTHER/UNSPECIFIED)
  8. PEMBROLIZUMAB [Suspect]
     Active Substance: PEMBROLIZUMAB
     Indication: Product used for unknown indication
     Dosage: 200 MG FLAT DOSE, D1/D22/D43 PRE-AND POST OP, AFTERWARDS D1 Q3W.?200 MG?FORM: UNSPECIFIED/OTHER?ROA:
  9. ONTRUZANT [Suspect]
     Active Substance: TRASTUZUMAB-DTTB
     Indication: Oesophageal adenocarcinoma
     Dosage: D1?8 MG/M2?FORM: UNSPECIFIED/OTHER?ROA: INTRAVENOUS
  10. ONTRUZANT [Suspect]
     Active Substance: TRASTUZUMAB-DTTB
     Indication: Product used for unknown indication
     Dosage: D22/D43 PRE AND POST OP, AFTERWARDS 6 MG/KG IV D1 Q3W?6 MG/M2?FORM: UNSPECIFIED?ROA: INTRAVENOUS

REACTIONS (2)
  - Sepsis [Not Recovered/Not Resolved]
  - Product use in unapproved indication [Unknown]

NARRATIVE: CASE EVENT DATE: 20231203
